FAERS Safety Report 9531500 (Version 2)
Quarter: 2013Q2

REPORT INFORMATION
  Report Type: Spontaneous
  Country: US (occurrence: None)
  Receive Date: 20130418
  Receipt Date: 20130606
  Transmission Date: 20140414
  Serious: No
  Sender: FDA-Public Use
  Company Number: 2012PROUSA02173

PATIENT
  Age: 66 Year
  Sex: Male
  Weight: 73.7 kg

DRUGS (8)
  1. PROVENGE (SIPULEUCEL-T) SUSPENSION, 250ML [Suspect]
     Indication: PROSTATE CANCER METASTATIC
     Dosage: 250 ML, SINGLE, INTRAVENOUS
     Route: 042
     Dates: start: 20120817, end: 20120817
  2. ALPRAZOLAM (ALPRAZOLAM) [Concomitant]
  3. LUPRON (LEUPRORELIN ACETATE) [Concomitant]
  4. PROLIA (DENOSUMAB) [Concomitant]
  5. COMBIVENT (IPRATROPIUM BROMIDE, SALBUTAMOL SULFATE) [Concomitant]
  6. MULTIVITAMIN (VITAMINS NOS) [Concomitant]
  7. DIOVAN HCT (HYDROCHLOROTHIAZIDE, VALSARTAN) [Concomitant]
  8. SIMVASTATIN (SIMVASTATIN) [Concomitant]

REACTIONS (1)
  - Culture positive [None]
